FAERS Safety Report 6181040-1 (Version None)
Quarter: 2009Q2

REPORT INFORMATION
  Report Type: 
  Country: None (occurrence: None)
  Receive Date: 20090504
  Receipt Date: 20090504
  Transmission Date: 20091009
  Serious: Yes (Other)
  Sender: FDA-Public Use
  Company Number: None

PATIENT
  Age: 5 Year
  Sex: Male
  Weight: 19.0511 kg

DRUGS (1)
  1. ADVAIR HFA [Suspect]
     Indication: ASTHMA
     Dosage: 2 PUFFS 2X DAY INHAL
     Route: 055
     Dates: start: 20080916, end: 20080916

REACTIONS (2)
  - COUGH [None]
  - DYSPNOEA [None]
